FAERS Safety Report 5200018-5 (Version None)
Quarter: 2007Q1

REPORT INFORMATION
  Report Type: 
  Country: None (occurrence: None)
  Receive Date: 20070105
  Receipt Date: 20070102
  Transmission Date: 20070707
  Serious: Yes (Disabling, Other)
  Sender: FDA-Public Use
  Company Number: 2007UW00028

PATIENT
  Age: 56 Year
  Sex: Female
  Weight: 70.3 kg

DRUGS (3)
  1. ARIMIDEX [Suspect]
     Indication: BREAST CANCER
     Route: 048
     Dates: start: 20050601
  2. LISINOPRIL [Concomitant]
  3. LORAZEPAM [Concomitant]

REACTIONS (4)
  - BLOOD PRESSURE INCREASED [None]
  - BONE PAIN [None]
  - CONTUSION [None]
  - GLUCOSE TOLERANCE IMPAIRED [None]
